FAERS Safety Report 8961133 (Version 1)
Quarter: 2012Q4

REPORT INFORMATION
  Report Type: 
  Country: US (occurrence: US)
  Receive Date: 20121212
  Receipt Date: 20121212
  Transmission Date: 20130627
  Serious: Yes (Other)
  Sender: FDA-Public Use
  Company Number: US-GLAXOSMITHKLINE-A1004053A

PATIENT
  Age: 42 Year
  Sex: Female

DRUGS (8)
  1. ADVAIR [Suspect]
     Indication: ASTHMA
     Route: 055
     Dates: start: 20121204
  2. ALBUTEROL [Concomitant]
     Route: 055
  3. ALLEGRA-D [Concomitant]
  4. ACCOLATE [Concomitant]
  5. PULMICORT [Concomitant]
  6. Z PACK [Concomitant]
  7. BIRTH CONTROL [Concomitant]
  8. SALINE [Concomitant]
     Route: 045

REACTIONS (6)
  - Loss of consciousness [Recovered/Resolved]
  - Depressed level of consciousness [Recovered/Resolved]
  - Convulsion [Recovered/Resolved]
  - Petit mal epilepsy [Recovered/Resolved]
  - Immobile [Recovered/Resolved]
  - Feeling abnormal [Recovered/Resolved]
